FAERS Safety Report 5510370-9 (Version None)
Quarter: 2007Q4

REPORT INFORMATION
  Report Type: 
  Country: None (occurrence: None)
  Receive Date: 20071108
  Receipt Date: 20071029
  Transmission Date: 20080405
  Serious: Yes (Hospitalization)
  Sender: FDA-Public Use
  Company Number: US-AMGEN-US250290

PATIENT
  Sex: Female

DRUGS (4)
  1. ENBREL [Suspect]
     Indication: JUVENILE ARTHRITIS
     Route: 065
     Dates: end: 20061103
  2. PREDNISONE TAB [Concomitant]
     Route: 065
  3. PRENATAL VITAMINS [Concomitant]
     Route: 065
     Dates: start: 20061101, end: 20070801
  4. TYLENOL (CAPLET) [Concomitant]
     Route: 065

REACTIONS (2)
  - CAESAREAN SECTION [None]
  - VIRAL INFECTION [None]
